FAERS Safety Report 5621846-8 (Version None)
Quarter: 2008Q1

REPORT INFORMATION
  Report Type: 
  Country: None (occurrence: None)
  Receive Date: 20080206
  Receipt Date: 20080123
  Transmission Date: 20080703
  Serious: Yes (Other)
  Sender: FDA-Public Use
  Company Number: 2008SP000153

PATIENT
  Age: 1 Year
  Sex: Male

DRUGS (4)
  1. XOPENEX [Suspect]
     Indication: WHEEZING
     Dosage: 1.25 MG/3ML; PRN; INHALATION
     Route: 055
     Dates: start: 20010101, end: 20050101
  2. PULMICORT [Concomitant]
  3. ROBITUSSIN [Concomitant]
  4. ALBUTEROL [Concomitant]

REACTIONS (11)
  - APNOEA [None]
  - ARTHROPOD BITE [None]
  - BRONCHIAL HYPERREACTIVITY [None]
  - COMPLEX PARTIAL SEIZURES [None]
  - COUGH [None]
  - STARING [None]
  - SYDENHAM'S CHOREA [None]
  - TARDIVE DYSKINESIA [None]
  - TREATMENT NONCOMPLIANCE [None]
  - UPPER RESPIRATORY TRACT INFECTION [None]
  - WHEEZING [None]
